FAERS Safety Report 4511444-1 (Version None)
Quarter: 2004Q4

REPORT INFORMATION
  Report Type: 
  Country: None (occurrence: None)
  Receive Date: 20041129
  Receipt Date: 20040812
  Transmission Date: 20050328
  Serious: Yes (Hospitalization, Other)
  Sender: FDA-Public Use
  Company Number: US-BRISTOL-MYERS SQUIBB COMPANY-12669982

PATIENT
  Age: 15 Year
  Sex: Male
  Weight: 103 kg

DRUGS (1)
  1. ABILIFY [Suspect]
     Indication: BIPOLAR DISORDER
     Route: 048

REACTIONS (5)
  - BIPOLAR DISORDER [None]
  - DROOLING [None]
  - INCREASED APPETITE [None]
  - PARKINSONISM [None]
  - WEIGHT INCREASED [None]
